FAERS Safety Report 15656099 (Version 1)
Quarter: 2018Q4

REPORT INFORMATION
  Report Type: Spontaneous
  Country: US (occurrence: US)
  Receive Date: 20181126
  Receipt Date: 20181126
  Transmission Date: 20190205
  Serious: Yes (Other)
  Sender: FDA-Public Use
  Company Number: US-PFIZER INC-2018479971

PATIENT
  Sex: Female
  Weight: 100 kg

DRUGS (4)
  1. CREON [Concomitant]
     Active Substance: PANCRELIPASE AMYLASE\PANCRELIPASE LIPASE\PANCRELIPASE PROTEASE
     Indication: PANCREATITIS CHRONIC
     Dosage: UNK
  2. LYRICA [Suspect]
     Active Substance: PREGABALIN
     Indication: AUTOIMMUNE DISORDER
     Dosage: 100 MG, 3X/DAY (INCREASED TO 100 MILLIGRAMS 4-6 MONTHS AGO)
     Route: 048
     Dates: start: 2005
  3. LYRICA [Suspect]
     Active Substance: PREGABALIN
     Indication: NERVE INJURY
  4. LYRICA [Suspect]
     Active Substance: PREGABALIN
     Indication: NERVE INJURY
     Dosage: UNK, 1X/DAY (50 MILLIGRAMS OR 40 MILLIGRAMS OF LYRICA, SOMETHING A LOT SMALLER)

REACTIONS (4)
  - Autoimmune disorder [Unknown]
  - Pernicious anaemia [Unknown]
  - Product use issue [Unknown]
  - Gastritis [Unknown]
